FAERS Safety Report 7053187-9 (Version None)
Quarter: 2010Q4

REPORT INFORMATION
  Report Type: 
  Country: None (occurrence: None)
  Receive Date: 20101020
  Receipt Date: 20101008
  Transmission Date: 20110411
  Serious: Yes (Hospitalization)
  Sender: FDA-Public Use
  Company Number: US-JNJFOC-20101003293

PATIENT
  Sex: Female
  Weight: 51.2 kg

DRUGS (4)
  1. REMICADE [Suspect]
     Indication: INFLAMMATORY BOWEL DISEASE
     Route: 042
  2. 5ASA [Concomitant]
     Route: 048
  3. ANTIBIOTICS [Concomitant]
     Indication: INFLAMMATORY BOWEL DISEASE
  4. AZATHIOPRINE [Concomitant]

REACTIONS (2)
  - NAUSEA [None]
  - VOMITING [None]
